FAERS Safety Report 4825303-8 (Version None)
Quarter: 2005Q4

REPORT INFORMATION
  Report Type: 
  Country: None (occurrence: None)
  Receive Date: 20051110
  Receipt Date: 20051110
  Transmission Date: 20060501
  Serious: Yes (Life-Threatening)
  Sender: FDA-Public Use
  Company Number: None

PATIENT
  Age: 77 Year
  Sex: Female
  Weight: 80.7403 kg

DRUGS (1)
  1. DOXIL [Suspect]
     Indication: OVARIAN CANCER
     Dosage: 65 MG 1 IV
     Route: 042
     Dates: start: 20051031

REACTIONS (3)
  - ANAPHYLACTIC SHOCK [None]
  - DYSPNOEA [None]
  - SKIN DISCOLOURATION [None]
